FAERS Safety Report 4799761-1 (Version None)
Quarter: 2005Q4

REPORT INFORMATION
  Report Type: 
  Country: None (occurrence: None)
  Receive Date: 20051012
  Receipt Date: 20051012
  Transmission Date: 20060501
  Serious: Yes (Hospitalization)
  Sender: FDA-Public Use
  Company Number: None

PATIENT
  Sex: Female
  Weight: 79.8331 kg

DRUGS (12)
  1. REGULAR INSULIN [Suspect]
     Indication: DIABETES MELLITUS
     Dosage: 20 UNITS  (THERAPY DATES: PRIOR TO ADMISSION)
  2. LANTUS [Concomitant]
  3. COREG [Concomitant]
  4. COUMADIN [Concomitant]
  5. CAPTOPRIL [Concomitant]
  6. AMBIEN [Concomitant]
  7. CRESTOR [Concomitant]
  8. PHENYTEC [Concomitant]
  9. SYNTHROID [Concomitant]
  10. TORSEMIDE [Concomitant]
  11. HYDROXYZINE [Concomitant]
  12. ALLOPURINOL [Concomitant]

REACTIONS (2)
  - HYPOGLYCAEMIA [None]
  - MENTAL STATUS CHANGES [None]
